FAERS Safety Report 8242814-6 (Version None)
Quarter: 2012Q1

REPORT INFORMATION
  Report Type: 
  Country: None (occurrence: None)
  Receive Date: 20120329
  Receipt Date: 20120321
  Transmission Date: 20120608
  Serious: Yes (Hospitalization, Other)
  Sender: FDA-Public Use
  Company Number: PHHY2012BE024867

PATIENT
  Age: 50 Year
  Sex: Female

DRUGS (3)
  1. LAMOTRGINE [Suspect]
     Dosage: 3.5 G, UNK
  2. LAMOTRGINE [Suspect]
     Dosage: 75 MG, QD
  3. REPAGLINIDE [Concomitant]

REACTIONS (10)
  - SINUS TACHYCARDIA [None]
  - SUICIDE ATTEMPT [None]
  - UNRESPONSIVE TO STIMULI [None]
  - INTENTIONAL OVERDOSE [None]
  - BLOOD PH DECREASED [None]
  - BUNDLE BRANCH BLOCK LEFT [None]
  - ELECTROCARDIOGRAM QRS COMPLEX ABNORMAL [None]
  - ALTERED STATE OF CONSCIOUSNESS [None]
  - DRUG LEVEL INCREASED [None]
  - TOXICITY TO VARIOUS AGENTS [None]
